FAERS Safety Report 5802617-6 (Version None)
Quarter: 2008Q3

REPORT INFORMATION
  Report Type: 
  Country: None (occurrence: None)
  Receive Date: 20080708
  Receipt Date: 20080623
  Transmission Date: 20090109
  Serious: Yes (Other)
  Sender: FDA-Public Use
  Company Number: US-BRISTOL-MYERS SQUIBB COMPANY-14238919

PATIENT
  Age: 59 Year
  Sex: Female

DRUGS (4)
  1. ORENCIA [Suspect]
     Indication: RHEUMATOID ARTHRITIS
     Route: 042
     Dates: start: 20071201
  2. METHOTREXATE [Concomitant]
  3. VITAMINS [Concomitant]
  4. NAPROXEN SODIUM [Concomitant]

REACTIONS (1)
  - FOOT DEFORMITY [None]
